FAERS Safety Report 8392238-6 (Version None)
Quarter: 2012Q2

REPORT INFORMATION
  Report Type: 
  Country: None (occurrence: None)
  Receive Date: 20120529
  Receipt Date: 20120516
  Transmission Date: 20120825
  Serious: Yes (Other)
  Sender: FDA-Public Use
  Company Number: US-ROCHE-1032811

PATIENT
  Sex: Female
  Weight: 54.48 kg

DRUGS (1)
  1. ACCUTANE [Suspect]
     Indication: ACNE CYSTIC
     Route: 065
     Dates: start: 19960101, end: 19970101

REACTIONS (10)
  - ANAEMIA [None]
  - DEPRESSION [None]
  - INJURY [None]
  - INTESTINAL HAEMORRHAGE [None]
  - PEPTIC ULCER [None]
  - DIVERTICULITIS [None]
  - ILEITIS [None]
  - COLITIS [None]
  - CROHN'S DISEASE [None]
  - INFLAMMATORY BOWEL DISEASE [None]
